FAERS Safety Report 13036458 (Version 1)
Quarter: 2016Q4

REPORT INFORMATION
  Report Type: Report from Study
  Country: CA (occurrence: CA)
  Receive Date: 20161216
  Receipt Date: 20161216
  Transmission Date: 20170207
  Serious: Yes (Hospitalization, Other)
  Sender: FDA-Public Use
  Company Number: CA-AMGEN-CANSL2016175822

PATIENT
  Age: 60 Year
  Sex: Female

DRUGS (4)
  1. MORPHINE [Concomitant]
     Active Substance: MORPHINE
  2. FOLIC ACID. [Concomitant]
     Active Substance: FOLIC ACID
  3. PROLIA [Suspect]
     Active Substance: DENOSUMAB
     Indication: PRODUCT USED FOR UNKNOWN INDICATION
     Dosage: UNK
     Route: 065
     Dates: start: 20151230
  4. MAGNESIUM [Concomitant]
     Active Substance: MAGNESIUM

REACTIONS (5)
  - Metastasis [Unknown]
  - Limb operation [Unknown]
  - Lung neoplasm malignant [Unknown]
  - Metastases to bone [Unknown]
  - Amnesia [Unknown]

NARRATIVE: CASE EVENT DATE: 2016
